FAERS Safety Report 23862779 (Version 2)
Quarter: 2024Q4

REPORT INFORMATION
  Report Type: Spontaneous
  Country: AR (occurrence: AR)
  Receive Date: 20240516
  Receipt Date: 20241112
  Transmission Date: 20250115
  Serious: No
  Sender: PFIZER
  Company Number: AR-PFIZER INC-202400106683

PATIENT
  Age: 12 Year
  Sex: Female

DRUGS (1)
  1. GENOTROPIN [Suspect]
     Active Substance: SOMATROPIN
     Indication: Turner^s syndrome
     Dosage: 1.2 MG FOR 4 DAYS AND 1 MG FOR 2 DAYS
     Dates: start: 20170114

REACTIONS (3)
  - Device mechanical issue [Unknown]
  - Device difficult to use [Unknown]
  - Expired device used [Unknown]

NARRATIVE: CASE EVENT DATE: 20240501
